FAERS Safety Report 5242070-7 (Version None)
Quarter: 2007Q1

REPORT INFORMATION
  Report Type: 
  Country: None (occurrence: None)
  Receive Date: 20070220
  Receipt Date: 20070212
  Transmission Date: 20070707
  Serious: Yes (Other)
  Sender: FDA-Public Use
  Company Number: GB-MERCK-0702USA02897

PATIENT
  Age: 81 Year
  Sex: Female
  Weight: 142 kg

DRUGS (6)
  1. PRINIVIL [Suspect]
     Indication: HYPERTENSION
     Route: 048
     Dates: end: 20070125
  2. ASPIRIN [Concomitant]
     Indication: PROPHYLAXIS
     Route: 048
     Dates: start: 20061227
  3. LEVOTHYROXINE SODIUM [Concomitant]
     Indication: HYPOTHYROIDISM
     Route: 048
     Dates: start: 20060327
  4. ACETAMINOPHEN [Concomitant]
     Indication: PAIN
     Route: 048
     Dates: start: 20061204
  5. VENLAFAXINE HYDROCHLORIDE [Concomitant]
     Indication: AGORAPHOBIA
     Route: 048
     Dates: start: 20050905, end: 20060202
  6. VENLAFAXINE HYDROCHLORIDE [Concomitant]
     Indication: DEPRESSION
     Route: 048
     Dates: start: 20050905, end: 20060202

REACTIONS (3)
  - ANGIOEDEMA [None]
  - LIP SWELLING [None]
  - SWELLING FACE [None]
